FAERS Safety Report 5705102-5 (Version None)
Quarter: 2008Q2

REPORT INFORMATION
  Report Type: 
  Country: None (occurrence: None)
  Receive Date: 20080410
  Receipt Date: 20080402
  Transmission Date: 20081010
  Serious: No
  Sender: FDA-Public Use
  Company Number: 08H-163-0314111-00

PATIENT
  Age: 18 Year
  Sex: Female
  Weight: 56.6996 kg

DRUGS (2)
  1. EPHEDRINE SULFATE 50MG/ML INJECTION, USP, 1ML AMPULE (EPHEDRINE SULFAT [Suspect]
     Indication: HYPOTENSION
     Dosage: 10 MG, ONCE; INTRAVENOUS
     Route: 042
     Dates: start: 20080327, end: 20080327
  2. SEVOFLURANE [Concomitant]

REACTIONS (2)
  - BRADYCARDIA [None]
  - HYPOTENSION [None]
